FAERS Safety Report 5769818-7 (Version None)
Quarter: 2008Q2

REPORT INFORMATION
  Report Type: 
  Country: None (occurrence: None)
  Receive Date: 20080612
  Receipt Date: 20080410
  Transmission Date: 20081010
  Serious: No
  Sender: FDA-Public Use
  Company Number: US-ABBOTT-08P-163-0446695-00

PATIENT
  Sex: Male
  Weight: 104.42 kg

DRUGS (4)
  1. HUMIRA [Suspect]
     Indication: COLITIS ULCERATIVE
     Route: 058
     Dates: start: 20080330, end: 20080330
  2. HUMIRA [Suspect]
     Route: 058
  3. ENDOCORT [Concomitant]
     Indication: COLITIS ULCERATIVE
     Route: 048
     Dates: start: 20070101
  4. LIALDA [Concomitant]
     Indication: COLITIS ULCERATIVE
     Dates: start: 20080101

REACTIONS (2)
  - INITIAL INSOMNIA [None]
  - RESTLESSNESS [None]
